FAERS Safety Report 24096923 (Version 1)
Quarter: 2024Q3

REPORT INFORMATION
  Report Type: Spontaneous
  Country: US (occurrence: US)
  Receive Date: 20240716
  Receipt Date: 20240716
  Transmission Date: 20241016
  Serious: No
  Sender: GRIFOLS
  Company Number: US-IGSA-BIG0026646

PATIENT
  Age: 42 Year
  Sex: Male

DRUGS (4)
  1. GAMUNEX-C [Suspect]
     Active Substance: HUMAN IMMUNOGLOBULIN G
     Indication: Chronic inflammatory demyelinating polyradiculoneuropathy
     Dosage: 80 GRAM, Q.4WK.
     Route: 042
     Dates: start: 20231020
  2. GAMUNEX-C [Suspect]
     Active Substance: HUMAN IMMUNOGLOBULIN G
     Dosage: 40 GRAM, TOTAL
     Route: 042
     Dates: start: 20231020, end: 20231020
  3. GAMUNEX-C [Suspect]
     Active Substance: HUMAN IMMUNOGLOBULIN G
     Dosage: 40 GRAM, TOTAL
     Route: 042
     Dates: start: 20231121, end: 20231121
  4. GAMUNEX-C [Suspect]
     Active Substance: HUMAN IMMUNOGLOBULIN G
     Dosage: UNK, UNKNOWN
     Route: 042
     Dates: start: 202201

REACTIONS (7)
  - Asthenia [Recovered/Resolved]
  - Muscle spasms [Not Recovered/Not Resolved]
  - Tremor [Recovered/Resolved]
  - Abdominal pain upper [Recovered/Resolved]
  - Headache [Recovered/Resolved]
  - Flushing [Recovered/Resolved]
  - Feeling hot [Not Recovered/Not Resolved]

NARRATIVE: CASE EVENT DATE: 20231020
